FAERS Safety Report 7735649-1 (Version None)
Quarter: 2011Q3

REPORT INFORMATION
  Report Type: 
  Country: None (occurrence: None)
  Receive Date: 20110907
  Receipt Date: 20110825
  Transmission Date: 20111222
  Serious: Yes (Death)
  Sender: FDA-Public Use
  Company Number: GB-GENENTECH-323649

PATIENT
  Sex: Male

DRUGS (10)
  1. DOXORUBICIN HCL [Suspect]
     Indication: PRODUCT USED FOR UNKNOWN INDICATION
     Dosage: UNK
     Route: 065
  2. METHYLPREDNISOLONE [Suspect]
     Indication: PRODUCT USED FOR UNKNOWN INDICATION
     Dosage: UNK
     Route: 065
  3. PREDNISOLONE [Suspect]
     Indication: PRODUCT USED FOR UNKNOWN INDICATION
     Dosage: UNK
     Route: 065
  4. RITUXIMAB [Suspect]
     Dosage: UNK
     Route: 065
  5. VINCRISTINE [Suspect]
     Indication: PRODUCT USED FOR UNKNOWN INDICATION
     Dosage: UNK
     Route: 065
  6. METHYLPREDNISOLONE [Suspect]
     Dosage: UNK
     Route: 065
  7. CYCLOPHOSPHAMIDE [Suspect]
     Indication: PRODUCT USED FOR UNKNOWN INDICATION
     Dosage: UNK
     Route: 065
  8. CYCLOPHOSPHAMIDE [Suspect]
     Dosage: UNK
     Route: 065
  9. METHOTREXATE [Suspect]
     Indication: PRODUCT USED FOR UNKNOWN INDICATION
     Dosage: UNK
     Route: 042
  10. RITUXIMAB [Suspect]
     Indication: PRODUCT USED FOR UNKNOWN INDICATION
     Dosage: UNK
     Route: 065

REACTIONS (5)
  - CONFUSIONAL STATE [None]
  - BRADYCARDIA [None]
  - GAZE PALSY [None]
  - DISEASE PROGRESSION [None]
  - HYPOTHERMIA [None]
